FAERS Safety Report 15904327 (Version 9)
Quarter: 2022Q2

REPORT INFORMATION
  Report Type: Report from Study
  Country: DE (occurrence: None)
  Receive Date: 20190204
  Receipt Date: 20220413
  Transmission Date: 20220721
  Serious: Yes (Other)
  Sender: FDA-Public Use
  Company Number: DE-ROCHE-2255094

PATIENT
  Age: 60 Year
  Sex: Male
  Weight: 86 kg

DRUGS (71)
  1. ATEZOLIZUMAB [Suspect]
     Active Substance: ATEZOLIZUMAB
     Indication: Malignant melanoma
     Dosage: ON 27/OCT/2017, HE RECEIVED THE MOST RECENT DOSE OF BLINDED ATEZOLIZUMAB PRIOR TO EVENT ONSET.
     Route: 041
     Dates: start: 20170526
  2. COBIMETINIB [Suspect]
     Active Substance: COBIMETINIB
     Indication: Malignant melanoma
     Dosage: ON 10/NOV/2017, HE RECEIVED THE MOST RECENT DOSE OF COBIMETINIB PRIOR TO EVENT ONSET.?ON 30/NOV/2017
     Route: 048
     Dates: start: 20170428
  3. VEMURAFENIB [Suspect]
     Active Substance: VEMURAFENIB
     Indication: Malignant melanoma
     Dosage: ON 10/NOV/2017, HE RECEIVED THE MOST RECENT DOSE OF VEMURAFENIB (4 TABLETS) PRIOR TO EVENT ONSET.?ON
     Route: 048
     Dates: start: 20170428
  4. CANDESARTAN [Concomitant]
     Active Substance: CANDESARTAN
     Indication: Hypertension
     Route: 048
     Dates: start: 20150801
  5. OMEPRAZOLE [Concomitant]
     Active Substance: OMEPRAZOLE
     Route: 048
     Dates: start: 20170616
  6. ARCOXIA [Concomitant]
     Active Substance: ETORICOXIB
     Indication: Arthralgia
     Route: 048
     Dates: start: 20170630, end: 20190704
  7. ARCOXIA [Concomitant]
     Active Substance: ETORICOXIB
     Route: 048
     Dates: start: 20190705
  8. GENTAMICIN [Concomitant]
     Active Substance: GENTAMICIN
     Indication: Hordeolum
     Dates: start: 20170801
  9. PREDNISOLONE [Concomitant]
     Active Substance: PREDNISOLONE
     Indication: Sarcoidosis
     Route: 048
     Dates: start: 20171110, end: 20171115
  10. PREDNISOLONE [Concomitant]
     Active Substance: PREDNISOLONE
     Indication: Cough
     Route: 048
     Dates: start: 20171116, end: 20171118
  11. PREDNISOLONE [Concomitant]
     Active Substance: PREDNISOLONE
     Route: 048
     Dates: start: 20171119, end: 20171122
  12. PREDNISOLONE [Concomitant]
     Active Substance: PREDNISOLONE
     Route: 048
     Dates: start: 20171123, end: 20171127
  13. PREDNISOLONE [Concomitant]
     Active Substance: PREDNISOLONE
     Route: 048
     Dates: start: 20171128, end: 20171208
  14. PREDNISOLONE [Concomitant]
     Active Substance: PREDNISOLONE
     Route: 048
     Dates: start: 20171209, end: 20171229
  15. PREDNISOLONE [Concomitant]
     Active Substance: PREDNISOLONE
     Route: 048
     Dates: start: 20171230, end: 20180107
  16. PREDNISOLONE [Concomitant]
     Active Substance: PREDNISOLONE
     Route: 048
     Dates: start: 20180108, end: 20180112
  17. PREDNISOLONE [Concomitant]
     Active Substance: PREDNISOLONE
     Route: 048
     Dates: start: 20180113, end: 20180114
  18. PREDNISOLONE [Concomitant]
     Active Substance: PREDNISOLONE
     Route: 048
     Dates: start: 20180115, end: 20180116
  19. PREDNISOLONE [Concomitant]
     Active Substance: PREDNISOLONE
     Route: 048
     Dates: start: 20180117, end: 20180118
  20. PREDNISOLONE [Concomitant]
     Active Substance: PREDNISOLONE
     Route: 048
     Dates: start: 20180119, end: 20180622
  21. PREDNISOLONE [Concomitant]
     Active Substance: PREDNISOLONE
     Route: 048
     Dates: start: 20180119, end: 20180622
  22. PREDNISOLONE [Concomitant]
     Active Substance: PREDNISOLONE
     Route: 048
     Dates: start: 20180623, end: 20190510
  23. PREDNISOLONE [Concomitant]
     Active Substance: PREDNISOLONE
     Route: 048
     Dates: start: 20190511, end: 20191113
  24. PREDNISOLONE [Concomitant]
     Active Substance: PREDNISOLONE
     Route: 048
     Dates: start: 20191114
  25. CALCIUM CARBONATE\CHOLECALCIFEROL [Concomitant]
     Active Substance: CALCIUM CARBONATE\CHOLECALCIFEROL
     Route: 048
     Dates: start: 20171110
  26. PANTOPRAZOLE SODIUM [Concomitant]
     Active Substance: PANTOPRAZOLE SODIUM
     Route: 048
     Dates: start: 20171110, end: 20200120
  27. PANTOPRAZOLE SODIUM [Concomitant]
     Active Substance: PANTOPRAZOLE SODIUM
     Route: 048
     Dates: start: 20200121
  28. AMOXICILLIN\CLAVULANIC ACID [Concomitant]
     Active Substance: AMOXICILLIN\CLAVULANIC ACID
     Indication: Cough
     Dates: start: 20180105, end: 20180112
  29. XYLOMETAZOLINE HYDROCHLORIDE [Concomitant]
     Active Substance: XYLOMETAZOLINE HYDROCHLORIDE
     Indication: Viral infection
     Dates: start: 20180130, end: 20191105
  30. AMBROXOL HYDROCHLORIDE [Concomitant]
     Active Substance: AMBROXOL HYDROCHLORIDE
     Indication: Viral infection
     Dates: start: 20180130, end: 20180202
  31. AMBROXOL HYDROCHLORIDE [Concomitant]
     Active Substance: AMBROXOL HYDROCHLORIDE
     Dates: start: 20200218, end: 20200228
  32. IBUPROFEN [Concomitant]
     Active Substance: IBUPROFEN
     Indication: Viral infection
     Dates: start: 20180130, end: 20180201
  33. IBUPROFEN [Concomitant]
     Active Substance: IBUPROFEN
     Indication: Headache
     Dates: start: 20180717
  34. IBUPROFEN [Concomitant]
     Active Substance: IBUPROFEN
     Indication: Arthralgia
     Dates: start: 20171103
  35. IBUPROFEN [Concomitant]
     Active Substance: IBUPROFEN
     Indication: Upper respiratory tract infection
     Dates: start: 20211003, end: 20211010
  36. CHLORHEXIL [Concomitant]
     Indication: Viral infection
     Dates: start: 20180130
  37. ATOSIL [Concomitant]
     Dosage: 5 OTHER
     Route: 048
     Dates: start: 20180509
  38. ELIDEL [Concomitant]
     Active Substance: PIMECROLIMUS
     Indication: Angular cheilitis
     Dates: start: 20181001
  39. ELIDEL [Concomitant]
     Active Substance: PIMECROLIMUS
     Dates: start: 20200523
  40. AMPHOTERICIN B [Concomitant]
     Active Substance: AMPHOTERICIN B
     Dates: start: 20181109
  41. SOLARAZE [Concomitant]
     Active Substance: DICLOFENAC SODIUM
     Indication: Actinic keratosis
     Dates: start: 20181123
  42. BETAGALEN [Concomitant]
     Indication: Sarcoidosis
     Dates: start: 20180509
  43. MAGNESIUM [Concomitant]
     Active Substance: MAGNESIUM
     Indication: Muscle spasms
     Dates: start: 20170725
  44. ACETYLCYSTEINE [Concomitant]
     Active Substance: ACETYLCYSTEINE
     Dates: start: 20190212, end: 20190301
  45. PARACODIN [Concomitant]
     Dates: start: 20190212, end: 20190301
  46. DEXAMETHASONE SODIUM PHOSPHATE\GENTAMICIN SULFATE [Concomitant]
     Active Substance: DEXAMETHASONE SODIUM PHOSPHATE\GENTAMICIN SULFATE
     Indication: Hordeolum
     Dates: start: 20190710, end: 20190724
  47. DEXAMETHASONE SODIUM PHOSPHATE\GENTAMICIN SULFATE [Concomitant]
     Active Substance: DEXAMETHASONE SODIUM PHOSPHATE\GENTAMICIN SULFATE
     Dates: start: 20190710, end: 20190724
  48. DICLOFENAC [Concomitant]
     Active Substance: DICLOFENAC
     Dates: start: 20191203
  49. OPTIDERM F [Concomitant]
     Dates: start: 20200103
  50. EUPHRASIA [Concomitant]
     Indication: Blepharitis
     Dates: start: 20200123
  51. CEFUROXIME [Concomitant]
     Active Substance: CEFUROXIME
     Indication: Metastases to bone
     Dates: start: 20200310, end: 20200320
  52. CEFUROXIME [Concomitant]
     Active Substance: CEFUROXIME
     Indication: Prophylaxis
     Dates: start: 20210607, end: 20210612
  53. CEFUROXIME [Concomitant]
     Active Substance: CEFUROXIME
     Dates: start: 20210922, end: 20210928
  54. METHOCARBAMOL [Concomitant]
     Active Substance: METHOCARBAMOL
     Route: 048
     Dates: start: 20200430, end: 20200504
  55. PALEXIA [Concomitant]
     Active Substance: TAPENTADOL HYDROCHLORIDE
     Route: 048
     Dates: start: 20200504, end: 20200703
  56. BRIVUDINE [Concomitant]
     Active Substance: BRIVUDINE
     Indication: Herpes zoster
     Dates: start: 20200507, end: 20200514
  57. LIDOCAINE [Concomitant]
     Active Substance: LIDOCAINE
     Dates: start: 20200514, end: 20200522
  58. NOVALGIN (METAMIZOLE SODIUM) [Concomitant]
     Active Substance: METAMIZOLE SODIUM
     Route: 048
     Dates: start: 20200515, end: 20200522
  59. NOVALGIN (METAMIZOLE SODIUM) [Concomitant]
     Active Substance: METAMIZOLE SODIUM
     Route: 048
     Dates: start: 20200523, end: 20200604
  60. NOVALGIN (METAMIZOLE SODIUM) [Concomitant]
     Active Substance: METAMIZOLE SODIUM
     Route: 048
     Dates: start: 20200605, end: 20200617
  61. NOVALGIN (METAMIZOLE SODIUM) [Concomitant]
     Active Substance: METAMIZOLE SODIUM
     Route: 048
     Dates: start: 20200702, end: 20200726
  62. LYRICA [Concomitant]
     Active Substance: PREGABALIN
     Indication: Post herpetic neuralgia
     Route: 048
     Dates: start: 20200718, end: 20200726
  63. SULTAMICILLIN [Concomitant]
     Active Substance: SULTAMICILLIN
     Route: 048
     Dates: start: 20201111, end: 20201116
  64. SOLARAZE [Concomitant]
     Active Substance: DICLOFENAC SODIUM
     Dates: start: 20180302, end: 20180302
  65. HYLO GEL [Concomitant]
     Dates: start: 20200123
  66. AZITHROMYCIN [Concomitant]
     Active Substance: AZITHROMYCIN
     Indication: Upper respiratory tract infection
     Dates: start: 20211003, end: 20211004
  67. AMOXICILLIN [Concomitant]
     Active Substance: AMOXICILLIN
     Indication: Upper respiratory tract infection
     Dates: start: 20211005, end: 20211011
  68. METROCREME [Concomitant]
     Indication: Rash
     Dates: start: 20220115
  69. PFIZER-BIONTECH COVID-19 VACCINE [Concomitant]
     Active Substance: TOZINAMERAN
     Dates: start: 20210512, end: 20210512
  70. MODERNA COVID-19 VACCINE [Concomitant]
     Active Substance: ELASOMERAN
     Dates: start: 20211209, end: 20211209
  71. KLISYRI [Concomitant]
     Active Substance: TIRBANIBULIN
     Indication: Actinic keratosis
     Dosage: 1 DF = 1 OTHER
     Route: 061
     Dates: start: 20220326

REACTIONS (1)
  - Serous retinal detachment [Not Recovered/Not Resolved]

NARRATIVE: CASE EVENT DATE: 20171110
